FAERS Safety Report 9276998 (Version 1)
Quarter: 2013Q2

REPORT INFORMATION
  Report Type: Spontaneous
  Country: US (occurrence: US)
  Receive Date: 20130507
  Receipt Date: 20130507
  Transmission Date: 20140414
  Serious: Yes (Other)
  Sender: FDA-Public Use
  Company Number: CHPA2013US007588

PATIENT
  Age: 80 Year
  Sex: Female

DRUGS (2)
  1. BENEFIBER SUGAR FREE [Suspect]
     Indication: MEDICAL DIET
     Dosage: 1-2 DF, QHS
     Route: 048
  2. BENEFIBER SUGAR FREE [Suspect]
     Indication: BOWEL MOVEMENT IRREGULARITY

REACTIONS (3)
  - Polyp [Unknown]
  - Off label use [Unknown]
  - Underdose [Unknown]
